FAERS Safety Report 25929677 (Version 1)
Quarter: 2025Q4

REPORT INFORMATION
  Report Type: Spontaneous
  Country: US (occurrence: US)
  Receive Date: 20251016
  Receipt Date: 20251016
  Transmission Date: 20260118
  Serious: Yes (Hospitalization)
  Sender: MYLAN
  Company Number: US-MYLANLABS-2025M1087771

PATIENT
  Sex: Female

DRUGS (16)
  1. LEVETIRACETAM [Suspect]
     Active Substance: LEVETIRACETAM
     Indication: Petit mal epilepsy
     Dosage: UNK
  2. VALPROATE [Suspect]
     Active Substance: VALPROIC ACID
     Indication: Idiopathic generalised epilepsy
     Dosage: UNK
  3. BRIVARACETAM [Suspect]
     Active Substance: BRIVARACETAM
     Indication: Idiopathic generalised epilepsy
     Dosage: UNK
  4. CANNABIDIOL [Suspect]
     Active Substance: CANNABIDIOL
     Indication: Idiopathic generalised epilepsy
     Dosage: UNK
  5. CLOBAZAM [Interacting]
     Active Substance: CLOBAZAM
     Indication: Idiopathic generalised epilepsy
     Dosage: 10 MILLIGRAM, INITIAL DOSE NIGHTLY
     Dates: start: 2023, end: 2023
  6. CLOBAZAM [Interacting]
     Active Substance: CLOBAZAM
     Dosage: 20 MILLIGRAM, NIGHTLY; 2 WEEKS POST-INITIAL DOSE
  7. CLOBAZAM [Interacting]
     Active Substance: CLOBAZAM
     Dosage: 30 MILLIGRAM, NIGHTLY; 4 WEEKS POST-INITIAL DOSE
  8. CLOBAZAM [Interacting]
     Active Substance: CLOBAZAM
     Dosage: 40 MILLIGRAM, NIGHTLY; 6 WEEKS POST-INITIAL DOSE
  9. CLOBAZAM [Interacting]
     Active Substance: CLOBAZAM
     Dosage: 30 MILLIGRAM, NIGHTLY; 10 WEEKS POST-INITIAL DOSE
  10. CLOBAZAM [Interacting]
     Active Substance: CLOBAZAM
     Dosage: 20 MILLIGRAM, NIGHTLY; 12 WEEKS POST-INITIAL DOSE
  11. ETHOSUXIMIDE [Suspect]
     Active Substance: ETHOSUXIMIDE
     Indication: Petit mal epilepsy
     Dosage: UNK
  12. LACOSAMIDE [Suspect]
     Active Substance: LACOSAMIDE
     Indication: Idiopathic generalised epilepsy
     Dosage: UNK
  13. LAMOTRIGINE [Suspect]
     Active Substance: LAMOTRIGINE
     Indication: Idiopathic generalised epilepsy
     Dosage: 700 MILLIGRAM, QD
  14. PERAMPANEL [Suspect]
     Active Substance: PERAMPANEL
     Indication: Idiopathic generalised epilepsy
     Dosage: UNK
  15. ZONISAMIDE [Suspect]
     Active Substance: ZONISAMIDE
     Indication: Idiopathic generalised epilepsy
     Dosage: UNK
  16. CENOBAMATE [Interacting]
     Active Substance: CENOBAMATE
     Indication: Idiopathic generalised epilepsy
     Dosage: 200 MILLIGRAM, NIGHTLY

REACTIONS (1)
  - Drug ineffective [Unknown]
